FAERS Safety Report 4821585-7 (Version None)
Quarter: 2005Q4

REPORT INFORMATION
  Report Type: 
  Country: None (occurrence: None)
  Receive Date: 20051103
  Receipt Date: 20051103
  Transmission Date: 20060501
  Serious: Yes (Other)
  Sender: FDA-Public Use
  Company Number: None

PATIENT
  Sex: Male
  Weight: 102.5 kg

DRUGS (1)
  1. RAPTIVA [Suspect]
     Indication: PSORIASIS
     Dosage: 1.0 CC (100MG) EVERY WEEK INJECTION SUBCUTANEOUS
     Route: 058
     Dates: start: 20040331, end: 20051017

REACTIONS (1)
  - HAEMOLYTIC ANAEMIA [None]
